FAERS Safety Report 4589883-2 (Version None)
Quarter: 2005Q1

REPORT INFORMATION
  Report Type: 
  Country: None (occurrence: None)
  Receive Date: 20050125
  Receipt Date: 20040812
  Transmission Date: 20050727
  Serious: No
  Sender: FDA-Public Use
  Company Number: USA040875425

PATIENT
  Age: 75 Year
  Sex: Female
  Weight: 45 kg

DRUGS (1)
  1. FORTEO [Suspect]
     Indication: OSTEOPOROSIS
     Dosage: 20 UG DAY
     Dates: start: 20040601

REACTIONS (4)
  - INJECTION SITE ERYTHEMA [None]
  - MUSCLE SPASMS [None]
  - VEIN DISORDER [None]
  - WEIGHT DECREASED [None]
